FAERS Safety Report 24628795 (Version 2)
Quarter: 2024Q4

REPORT INFORMATION
  Report Type: Report from Study
  Country: US (occurrence: US)
  Receive Date: 20241117
  Receipt Date: 20241218
  Transmission Date: 20250114
  Serious: Yes (Hospitalization, Other)
  Sender: ABBVIE
  Company Number: US-ABBVIE-6003950

PATIENT
  Age: 73 Year
  Sex: Female
  Weight: 86.183 kg

DRUGS (5)
  1. SKYRIZI [Suspect]
     Active Substance: RISANKIZUMAB-RZAA
     Indication: Psoriasis
     Dosage: FORM STRENGTH: 150 MG
     Route: 058
     Dates: start: 20241017
  2. SKYRIZI [Suspect]
     Active Substance: RISANKIZUMAB-RZAA
     Indication: Psoriatic arthropathy
  3. LIPITOR [Concomitant]
     Active Substance: ATORVASTATIN CALCIUM
     Indication: Blood cholesterol increased
  4. LIPITOR [Concomitant]
     Active Substance: ATORVASTATIN CALCIUM
     Indication: Blood cholesterol increased
  5. METOPROLOL [Concomitant]
     Active Substance: METOPROLOL
     Indication: Hypertension

REACTIONS (8)
  - Ischaemic stroke [Not Recovered/Not Resolved]
  - Skin laceration [Recovering/Resolving]
  - Carotid artery stenosis [Unknown]
  - Atrial fibrillation [Unknown]
  - Limb discomfort [Not Recovered/Not Resolved]
  - Wound cellulitis [Recovering/Resolving]
  - Peripheral swelling [Recovering/Resolving]
  - Wound haemorrhage [Unknown]

NARRATIVE: CASE EVENT DATE: 20240101
